FAERS Safety Report 16060303 (Version 1)
Quarter: 2019Q1

REPORT INFORMATION
  Report Type: Spontaneous
  Country: NL (occurrence: NL)
  Receive Date: 20190312
  Receipt Date: 20190312
  Transmission Date: 20190418
  Serious: Yes (Life-Threatening)
  Sender: FDA-Public Use
  Company Number: NL-TEVA-2019-NL-1022221

PATIENT
  Age: 54 Year
  Sex: Female
  Weight: 80 kg

DRUGS (5)
  1. HYDROCHLOORTHIAZIDE TABLET 12,5MG [Concomitant]
     Active Substance: HYDROCHLOROTHIAZIDE
     Dosage: 12 MILLIGRAM DAILY; 1 X PER DAY 1 TABLET MORNING
     Dates: start: 20181228
  2. CARBOMEER OOGGEL 2MG/G (CARBOMEER 980) (VIDISIC CARBOGEL EDO OOGGEL 2M [Concomitant]
     Dosage: 1-4 X PER DAY 1 DROP
     Dates: start: 20160115
  3. IBUPROFEN TABLET, 400 MG (MILLIGRAM) [Suspect]
     Active Substance: IBUPROFEN
     Indication: BACK PAIN
     Dosage: 3D1TABLET
     Dates: start: 20181225, end: 20181227
  4. AMANTADINE CAPSULE 100MG (SYMMETREL CAPSULE 100MG) [Concomitant]
     Dosage: 100 MILLIGRAM DAILY; 1 X PER DAY 1 CAPSULE
     Dates: start: 20160815
  5. CANDESARTAN TABLET  8MG [Concomitant]
     Active Substance: CANDESARTAN
     Dosage: 8 MILLIGRAM DAILY; 1 X PER DAY 1 TABLET
     Dates: start: 20150619

REACTIONS (3)
  - Throat tightness [Recovered/Resolved]
  - Dyspnoea [Recovered/Resolved]
  - Dysphagia [Recovered/Resolved]

NARRATIVE: CASE EVENT DATE: 20181227
